FAERS Safety Report 16054295 (Version 2)
Quarter: 2020Q1

REPORT INFORMATION
  Report Type: Report from Study
  Country: None (occurrence: US)
  Receive Date: 20190308
  Receipt Date: 20200116
  Transmission Date: 20200409
  Serious: Yes (Other)
  Sender: FDA-Public Use
  Company Number: US-ABBVIE-19K-163-2691201-00

PATIENT
  Age: 18 Year
  Sex: Female

DRUGS (3)
  1. HUMIRA [Suspect]
     Active Substance: ADALIMUMAB
     Indication: PSORIASIS
     Dosage: DAY 1
     Route: 058
     Dates: start: 20191218, end: 20191218
  2. HUMIRA [Suspect]
     Active Substance: ADALIMUMAB
     Dosage: DAY 8
     Route: 058
     Dates: start: 20191225
  3. HUMIRA [Suspect]
     Active Substance: ADALIMUMAB
     Indication: PSORIASIS
     Route: 058
     Dates: start: 201808, end: 2018

REACTIONS (7)
  - Frustration tolerance decreased [Recovered/Resolved]
  - General physical condition abnormal [Recovered/Resolved]
  - Psoriasis [Recovered/Resolved]
  - Skin mass [Unknown]
  - Mass [Unknown]
  - Emotional distress [Recovered/Resolved]
  - Helplessness [Recovered/Resolved]

NARRATIVE: CASE EVENT DATE: 2018
